FAERS Safety Report 11857404 (Version 2)
Quarter: 2016Q1

REPORT INFORMATION
  Report Type: Report from Study
  Country: US (occurrence: US)
  Receive Date: 20151221
  Receipt Date: 20160222
  Transmission Date: 20160526
  Serious: Yes (Hospitalization)
  Sender: FDA-Public Use
  Company Number: US-THERATECHNOLOGIES, INC.-TH-2015-00025

PATIENT
  Age: 54 Year
  Sex: Male
  Weight: 104.3 kg

DRUGS (9)
  1. TRUVADA [Concomitant]
     Active Substance: EMTRICITABINE\TENOFOVIR DISOPROXIL FUMARATE
     Indication: HIV INFECTION
     Dosage: TABLET
     Route: 048
     Dates: start: 20060824
  2. BUPROPION. [Concomitant]
     Active Substance: BUPROPION
     Indication: DEPRESSION
     Dosage: 200 MILLIGRAM
     Route: 048
     Dates: start: 20140206
  3. LORATADINE. [Concomitant]
     Active Substance: LORATADINE
     Indication: HYPERSENSITIVITY
     Dosage: 10 MILLIGRAM
     Route: 048
     Dates: start: 20100423
  4. NO STUDY MEDICATION [Suspect]
     Active Substance: UNSPECIFIED INGREDIENT
     Indication: LIPOHYPERTROPHY
     Dosage: NOT APPLICABLE
  5. RITONAVIR. [Concomitant]
     Active Substance: RITONAVIR
     Indication: HIV INFECTION
     Dosage: 100 MILLIGRAM
     Route: 048
     Dates: start: 20060824
  6. ACYCLOVIR. [Concomitant]
     Active Substance: ACYCLOVIR
     Indication: PROPHYLAXIS
     Dosage: 200 MILLIGRAM
     Route: 048
     Dates: start: 20060811
  7. TESTOSTERONE 1.62% GEL [Concomitant]
     Indication: HYPOGONADISM
     Dosage: 40.5 MILLIGRAM
     Route: 061
     Dates: start: 20071026
  8. ATAZANAVIR [Concomitant]
     Active Substance: ATAZANAVIR
     Indication: HIV INFECTION
     Dosage: 300 MILLIGRAM
     Route: 048
     Dates: start: 20060824
  9. FLUNISOLIDE. [Concomitant]
     Active Substance: FLUNISOLIDE
     Indication: HYPERSENSITIVITY
     Dosage: 2 PUFFS
     Route: 055
     Dates: start: 20100423

REACTIONS (2)
  - Cholangitis [Recovered/Resolved]
  - Bile duct stone [Recovered/Resolved]

NARRATIVE: CASE EVENT DATE: 20140913
